FAERS Safety Report 4485450-X (Version None)
Quarter: 2004Q4

REPORT INFORMATION
  Report Type: 
  Country: None (occurrence: None)
  Receive Date: 20041026
  Receipt Date: 20041015
  Transmission Date: 20050328
  Serious: Yes (Other)
  Sender: FDA-Public Use
  Company Number: US-BRISTOL-MYERS SQUIBB COMPANY-12733481

PATIENT
  Age: 50 Year
  Sex: Male
  Weight: 77 kg

DRUGS (3)
  1. EXCEDRIN ES TABS [Suspect]
     Indication: ARTHRALGIA
     Dosage: DURATION OF THERAPY: ^I AM ADDICTED TO EXCEDRIN FOR 8-10 YEARS^.
     Route: 048
     Dates: start: 19900101
  2. EXCEDRIN ES TABS [Suspect]
     Indication: PAIN
     Dosage: DURATION OF THERAPY: ^I AM ADDICTED TO EXCEDRIN FOR 8-10 YEARS^.
     Route: 048
     Dates: start: 19900101
  3. EXCEDRIN ES ASA FREE [Suspect]
     Dosage: LAST FEW YEARS HE HAS BEEN TAKING 10-12 TABS, SOMETIMES, 14-16 TABS DAILY.
     Route: 048

REACTIONS (3)
  - DEPENDENCE [None]
  - HEPATOMEGALY [None]
  - STOMACH DISCOMFORT [None]
